FAERS Safety Report 5911067-3 (Version None)
Quarter: 2008Q4

REPORT INFORMATION
  Report Type: 
  Country: None (occurrence: None)
  Receive Date: 20081007
  Receipt Date: 20070905
  Transmission Date: 20090506
  Serious: No
  Sender: FDA-Public Use
  Company Number: US-BRISTOL-MYERS SQUIBB COMPANY-13898341

PATIENT
  Age: 86 Year
  Sex: Female
  Weight: 72 kg

DRUGS (4)
  1. AVAPRO [Suspect]
     Indication: HYPERTENSION
     Route: 048
  2. PRINIVIL [Suspect]
     Dosage: LISINOPRIL WAS DISCONTINUED AND IRBESARTAN WAS STARTED SINCE LAST MONTH
     Route: 048
  3. VITAMINS [Concomitant]
  4. HYDROCHLOROTHIAZIDE [Concomitant]

REACTIONS (1)
  - ALOPECIA [None]
